FAERS Safety Report 12598642 (Version 1)
Quarter: 2016Q3

REPORT INFORMATION
  Report Type: Spontaneous
  Country: BR (occurrence: BR)
  Receive Date: 20160727
  Receipt Date: 20160727
  Transmission Date: 20161109
  Serious: Yes (Hospitalization)
  Sender: FDA-Public Use
  Company Number: BR-GLAXOSMITHKLINE-BR2016GSK102218

PATIENT
  Sex: Female

DRUGS (1)
  1. BACTROBAN [Suspect]
     Active Substance: MUPIROCIN\MUPIROCIN CALCIUM
     Route: 045

REACTIONS (6)
  - Swelling [Unknown]
  - Localised oedema [Unknown]
  - Incorrect route of drug administration [Unknown]
  - Off label use [Unknown]
  - Lung disorder [Unknown]
  - Hypersensitivity [Unknown]
